FAERS Safety Report 20085213 (Version 1)
Quarter: 2021Q4

REPORT INFORMATION
  Report Type: Spontaneous
  Country: US (occurrence: US)
  Receive Date: 20211118
  Receipt Date: 20211118
  Transmission Date: 20220303
  Serious: Yes (Other)
  Sender: FDA-Public Use
  Company Number: US-TEVA-2021-US-1977052

PATIENT
  Age: 84 Year
  Sex: Female

DRUGS (1)
  1. EPINEPHRINE [Suspect]
     Active Substance: EPINEPHRINE
     Indication: Allergy to arthropod sting
     Route: 065
     Dates: start: 20211031

REACTIONS (3)
  - Anaphylactic shock [Recovered/Resolved]
  - Device difficult to use [Unknown]
  - Device malfunction [Unknown]

NARRATIVE: CASE EVENT DATE: 20211031
